FAERS Safety Report 4356257-9 (Version None)
Quarter: 2004Q2

REPORT INFORMATION
  Report Type: 
  Country: None (occurrence: None)
  Receive Date: 20040511
  Receipt Date: 20040428
  Transmission Date: 20050107
  Serious: Yes (Life-Threatening, Other)
  Sender: FDA-Public Use
  Company Number: JP-SHR-04-023914

PATIENT
  Age: 64 Year
  Sex: Male

DRUGS (6)
  1. PROSCOPE 370 ( IOPROMIDE) N/A [Suspect]
     Indication: ARTERIOGRAM CORONARY
     Dosage: 200 ML, INTRA-ARTERIAL
     Route: 013
     Dates: start: 20040319, end: 20040319
  2. ASPIRIN [Suspect]
     Indication: THROMBOSIS PROPHYLAXIS
     Dosage: 100 MG, ORAL
     Route: 048
     Dates: start: 20040319, end: 20040319
  3. IOPAMIDOL [Concomitant]
  4. NITROGLYCERIN [Concomitant]
  5. HEPARIN SODIUM [Concomitant]
  6. NITROGLYCERIN ^NIHON KAYAKU^ [Concomitant]

REACTIONS (13)
  - ACUTE MYOCARDIAL INFARCTION [None]
  - ANAPHYLACTIC SHOCK [None]
  - BLOOD IMMUNOGLOBULIN E INCREASED [None]
  - CHEST PAIN [None]
  - DYSPHORIA [None]
  - EXANTHEM [None]
  - FEELING COLD [None]
  - HEADACHE [None]
  - HYPOTENSION [None]
  - NAUSEA [None]
  - PRURITUS [None]
  - URTICARIA [None]
  - VOMITING [None]
